FAERS Safety Report 11374605 (Version 1)
Quarter: 2015Q3

REPORT INFORMATION
  Report Type: Spontaneous
  Country: US (occurrence: US)
  Receive Date: 20150813
  Receipt Date: 20150813
  Transmission Date: 20151125
  Serious: Yes (Hospitalization, Other)
  Sender: FDA-Public Use
  Company Number: US-PAR PHARMACEUTICAL COMPANIES-2015SCPR014196

PATIENT

DRUGS (3)
  1. MARIJUANA [Concomitant]
     Active Substance: CANNABIS SATIVA SUBSP. INDICA TOP
     Indication: SUBSTANCE USE
     Dosage: UNK UNK, UNKNOWN
     Route: 065
  2. OXYMORPHONE HCL [Suspect]
     Active Substance: OXYMORPHONE HYDROCHLORIDE
     Dosage: UNK UNK, UNKNOWN
  3. OXYMORPHONE HCL [Suspect]
     Active Substance: OXYMORPHONE HYDROCHLORIDE
     Indication: SUBSTANCE USE
     Dosage: UNK UNK, UNKNOWN

REACTIONS (9)
  - Deafness bilateral [Recovered/Resolved]
  - Drug abuse [Unknown]
  - Intentional product use issue [None]
  - Deafness neurosensory [Recovered/Resolved]
  - Drug screen positive [None]
  - Pneumonia aspiration [Unknown]
  - Vomiting [Unknown]
  - Blood creatinine increased [Unknown]
  - Nasopharyngitis [None]
